FAERS Safety Report 4612947-1 (Version None)
Quarter: 2005Q1

REPORT INFORMATION
  Report Type: 
  Country: None (occurrence: None)
  Receive Date: 20050318
  Receipt Date: 20050310
  Transmission Date: 20050727
  Serious: Yes (Death)
  Sender: FDA-Public Use
  Company Number: FR-ROCHE-398022

PATIENT
  Age: 27 Year
  Sex: Male

DRUGS (4)
  1. VALIUM [Suspect]
     Indication: DRUG USE FOR UNKNOWN INDICATION
     Route: 048
     Dates: start: 20030122, end: 20030122
  2. MEPRONIZINE [Suspect]
     Indication: DRUG USE FOR UNKNOWN INDICATION
     Route: 048
     Dates: start: 20030122, end: 20030122
  3. IMOVANE [Concomitant]
     Route: 048
     Dates: start: 20030122, end: 20030122
  4. ALCOHOL [Concomitant]

REACTIONS (2)
  - CARDIAC ARREST [None]
  - OVERDOSE [None]
